FAERS Safety Report 20286805 (Version 1)
Quarter: 2022Q1

REPORT INFORMATION
  Report Type: Spontaneous
  Country: US (occurrence: US)
  Receive Date: 20220103
  Receipt Date: 20220103
  Transmission Date: 20220424
  Serious: No
  Sender: FDA-Public Use
  Company Number: US-PURDUE-USA-2020-0276438

PATIENT
  Sex: Male

DRUGS (1)
  1. OXYCONTIN [Suspect]
     Active Substance: OXYCODONE HYDROCHLORIDE
     Indication: Back pain
     Dosage: 3 AND 4 TIMES A DAY
     Route: 048
     Dates: start: 2002, end: 2008

REACTIONS (4)
  - Weight decreased [Unknown]
  - Emotional distress [Unknown]
  - Asthenia [Unknown]
  - Feeling abnormal [Unknown]
